FAERS Safety Report 13548856 (Version 3)
Quarter: 2017Q4

REPORT INFORMATION
  Report Type: Report from Study
  Country: US (occurrence: US)
  Receive Date: 20170516
  Receipt Date: 20171115
  Transmission Date: 20180320
  Serious: No
  Sender: FDA-Public Use
  Company Number: PHEH2017US013868

PATIENT
  Age: 79 Year
  Sex: Female

DRUGS (1)
  1. AFINITOR [Suspect]
     Active Substance: EVEROLIMUS
     Indication: PRODUCT USED FOR UNKNOWN INDICATION
     Dosage: UNK
     Route: 065
     Dates: start: 20170420, end: 20170916

REACTIONS (13)
  - Dyspnoea [Unknown]
  - Nausea [Unknown]
  - Pyrexia [Unknown]
  - Decreased appetite [Unknown]
  - Fatigue [Unknown]
  - Gallbladder disorder [Unknown]
  - Rash [Unknown]
  - Pneumonitis [Unknown]
  - Weight decreased [Unknown]
  - Arthralgia [Unknown]
  - Ageusia [Unknown]
  - Epistaxis [Unknown]
  - Asthenia [Unknown]

NARRATIVE: CASE EVENT DATE: 20170916
